FAERS Safety Report 8001563-X (Version None)
Quarter: 2011Q4

REPORT INFORMATION
  Report Type: 
  Country: None (occurrence: None)
  Receive Date: 20111222
  Receipt Date: 20111216
  Transmission Date: 20120403
  Serious: Yes (Hospitalization, Other)
  Sender: FDA-Public Use
  Company Number: FR-PFIZER INC-2011306068

PATIENT
  Age: 39 Year
  Sex: Female

DRUGS (2)
  1. XANAX [Suspect]
     Dosage: UNK
     Route: 048
     Dates: start: 20110722, end: 20110813
  2. TEGRETOL [Suspect]
     Dosage: UNK
     Route: 048
     Dates: start: 20110722, end: 20110813

REACTIONS (3)
  - LYMPHADENOPATHY [None]
  - KERATITIS [None]
  - TOXIC EPIDERMAL NECROLYSIS [None]
